FAERS Safety Report 14844688 (Version 2)
Quarter: 2018Q2

REPORT INFORMATION
  Report Type: Report from Study
  Country: US (occurrence: DE)
  Receive Date: 20180504
  Receipt Date: 20180619
  Transmission Date: 20180711
  Serious: Yes (Hospitalization, Other)
  Sender: FDA-Public Use
  Company Number: DE-TEVA-2018-DE-889622

PATIENT
  Age: 77 Year
  Sex: Male

DRUGS (9)
  1. PANTOZOL [Concomitant]
     Active Substance: PANTOPRAZOLE SODIUM
     Indication: GASTROOESOPHAGEAL REFLUX DISEASE
     Dosage: 20 MILLIGRAM DAILY; DAILY DOSE: 20 MG MILLIGRAM(S) EVERY DAY
     Route: 048
     Dates: start: 2012
  2. INFLANEFRAN [Concomitant]
     Active Substance: PREDNISOLONE ACETATE
     Dosage: 3 GTT DAILY; DAILY DOSE: 3 GTT DROP(S) EVERY DAY
     Route: 047
     Dates: start: 20170207, end: 20170213
  3. L-THYROXIN [Concomitant]
     Active Substance: LEVOTHYROXINE SODIUM
     Indication: HYPOTHYROIDISM
     Dosage: 75 MICROGRAM DAILY; DAILY DOSE: 75 MICROG MICROGRAM(S) EVERY DAY
     Route: 048
     Dates: start: 2015
  4. INFLANEFRAN [Concomitant]
     Active Substance: PREDNISOLONE ACETATE
     Indication: PROPHYLAXIS
     Dosage: 3 GTT DAILY; DAILY DOSE: 3 GTT DROP(S) EVERY DAY
     Route: 047
     Dates: start: 20170222, end: 20170228
  5. IBUPROFEN. [Concomitant]
     Active Substance: IBUPROFEN
     Indication: ARTHRALGIA
     Dosage: 1800 MILLIGRAM DAILY; DAILY DOSE: 1800 MG MILLIGRAM(S) EVERY DAY
     Route: 048
     Dates: start: 20170216, end: 20170223
  6. ABT-414 [Suspect]
     Active Substance: INVESTIGATIONAL PRODUCT
     Indication: GLIOBLASTOMA MULTIFORME
     Dosage: UNK
     Route: 042
     Dates: start: 20170126
  7. CANDESARTAN. [Concomitant]
     Active Substance: CANDESARTAN
     Indication: HYPERTENSION
     Dosage: 32 MILLIGRAM DAILY; DAILY DOSE: 32 MG MILLIGRAM(S) EVERY DAY
     Route: 048
     Dates: start: 2012
  8. TEMOZOLOMIDE. [Suspect]
     Active Substance: TEMOZOLOMIDE
     Indication: GLIOBLASTOMA MULTIFORME
     Dosage: 75 MG/M2 DAILY; 75 MG/M2, QD
     Route: 048
     Dates: start: 20170126
  9. INFLANEFRAN [Concomitant]
     Active Substance: PREDNISOLONE ACETATE
     Dosage: DAILY DOSE: 3 GTT DROP(S) EVERY DAY
     Route: 047
     Dates: start: 20170124, end: 20170130

REACTIONS (1)
  - Seizure [Recovered/Resolved]

NARRATIVE: CASE EVENT DATE: 20170225
